FAERS Safety Report 8089700-2 (Version None)
Quarter: 2012Q1

REPORT INFORMATION
  Report Type: 
  Country: None (occurrence: None)
  Receive Date: 20120128
  Receipt Date: 20110713
  Transmission Date: 20120608
  Serious: No
  Sender: FDA-Public Use
  Company Number: US-ABBOTT-11P-163-0836045-00

PATIENT
  Sex: Male
  Weight: 88.53 kg

DRUGS (4)
  1. TRAMADOL HCL [Concomitant]
     Indication: PRODUCT USED FOR UNKNOWN INDICATION
     Dosage: 2 TABS IN AM; 2 TABS AT NOON; 2 TABS HS
  2. CELEBREX [Concomitant]
     Indication: RHEUMATOID ARTHRITIS
     Route: 048
  3. HUMIRA [Suspect]
     Indication: RHEUMATOID ARTHRITIS
     Route: 058
     Dates: start: 20070101
  4. METHADONE HCL [Concomitant]
     Indication: ARTHRALGIA
     Route: 048

REACTIONS (6)
  - DRUG DOSE OMISSION [None]
  - RHEUMATOID ARTHRITIS [None]
  - DYSPNOEA [None]
  - DEVICE MALFUNCTION [None]
  - ARTHRALGIA [None]
  - INJECTION SITE PAIN [None]
